FAERS Safety Report 18285605 (Version 11)
Quarter: 2025Q3

REPORT INFORMATION
  Report Type: Report from Study
  Country: BR (occurrence: BR)
  Receive Date: 20200918
  Receipt Date: 20250920
  Transmission Date: 20251020
  Serious: Yes (Life-Threatening, Hospitalization, Other)
  Sender: NOVARTIS
  Company Number: NVSC2020BR179186

PATIENT
  Age: 65 Year
  Sex: Male

DRUGS (8)
  1. COSENTYX [Suspect]
     Active Substance: SECUKINUMAB
     Indication: Psoriatic arthropathy
     Route: 058
     Dates: start: 20190516
  2. COSENTYX [Suspect]
     Active Substance: SECUKINUMAB
     Indication: Psoriasis
     Route: 065
     Dates: start: 20200613
  3. COSENTYX [Suspect]
     Active Substance: SECUKINUMAB
     Route: 065
     Dates: start: 20200813
  4. COSENTYX [Suspect]
     Active Substance: SECUKINUMAB
     Route: 065
     Dates: start: 20200913
  5. COSENTYX [Suspect]
     Active Substance: SECUKINUMAB
     Route: 065
     Dates: start: 20210813
  6. COSENTYX [Suspect]
     Active Substance: SECUKINUMAB
     Route: 065
  7. COSENTYX [Suspect]
     Active Substance: SECUKINUMAB
     Route: 065
  8. DIPYRONE [Concomitant]
     Active Substance: DIPYRONE
     Indication: Product used for unknown indication
     Route: 065

REACTIONS (39)
  - Drug dependence [Unknown]
  - Endocarditis [Unknown]
  - Depression [Unknown]
  - Crying [Unknown]
  - Thinking abnormal [Unknown]
  - Musculoskeletal discomfort [Unknown]
  - Neuralgia [Unknown]
  - Rash macular [Not Recovered/Not Resolved]
  - Spinal pain [Unknown]
  - Asthma [Unknown]
  - Pruritus [Unknown]
  - Blister [Unknown]
  - Malaise [Unknown]
  - Nausea [Unknown]
  - Skin exfoliation [Not Recovered/Not Resolved]
  - Arthralgia [Not Recovered/Not Resolved]
  - Pain [Not Recovered/Not Resolved]
  - Emotional distress [Not Recovered/Not Resolved]
  - Neuritis [Unknown]
  - Movement disorder [Unknown]
  - Fall [Unknown]
  - Rheumatic disorder [Not Recovered/Not Resolved]
  - General physical health deterioration [Unknown]
  - Nail disorder [Recovering/Resolving]
  - Ill-defined disorder [Unknown]
  - Fear [Unknown]
  - Skin burning sensation [Not Recovered/Not Resolved]
  - Memory impairment [Unknown]
  - Dandruff [Not Recovered/Not Resolved]
  - Feeling abnormal [Unknown]
  - Psoriasis [Not Recovered/Not Resolved]
  - Pain in extremity [Unknown]
  - Gait inability [Not Recovered/Not Resolved]
  - Scoliosis [Not Recovered/Not Resolved]
  - Bone disorder [Not Recovered/Not Resolved]
  - Immune system disorder [Not Recovered/Not Resolved]
  - Chondropathy [Not Recovered/Not Resolved]
  - Dysstasia [Not Recovered/Not Resolved]
  - Drug ineffective [Not Recovered/Not Resolved]

NARRATIVE: CASE EVENT DATE: 20200915
